FAERS Safety Report 7598614-3 (Version None)
Quarter: 2011Q3

REPORT INFORMATION
  Report Type: 
  Country: None (occurrence: None)
  Receive Date: 20110710
  Receipt Date: 20110630
  Transmission Date: 20111222
  Serious: Yes (Hospitalization)
  Sender: FDA-Public Use
  Company Number: GB-AMGEN-GBRCT2011033622

PATIENT
  Age: 46 Year
  Sex: Female

DRUGS (8)
  1. CAPECITABINE [Concomitant]
     Dosage: UNK
  2. OXALIPLATIN [Concomitant]
     Dosage: UNK
     Dates: start: 20110208
  3. AVEENO CREAM [Concomitant]
  4. CETIRIZINE HCL [Concomitant]
     Dosage: 10 MG, QD
     Dates: start: 20110301
  5. MINOCYCLINE HCL [Concomitant]
     Dosage: 100 MG, BID
     Dates: start: 20110301
  6. PANITUMUMAB [Suspect]
     Indication: GASTRIC CANCER
     Dosage: UNK
     Dates: start: 20110208
  7. EPIRUBICIN [Concomitant]
     Dosage: UNK
  8. ACETAMINOPHEN [Concomitant]
     Dosage: 1 G, PRN

REACTIONS (1)
  - INFECTION [None]
